FAERS Safety Report 25880897 (Version 1)
Quarter: 2025Q4

REPORT INFORMATION
  Report Type: Spontaneous
  Country: EU (occurrence: EU)
  Receive Date: 20251004
  Receipt Date: 20251004
  Transmission Date: 20260117
  Serious: Yes (Hospitalization)
  Sender: AUROBINDO
  Company Number: EU-AFSSAPS-MA2025000879

PATIENT
  Age: 87 Year
  Sex: Male

DRUGS (4)
  1. VENLAFAXINE [Suspect]
     Active Substance: VENLAFAXINE HYDROCHLORIDE
     Indication: Depression
     Dosage: UNK
     Route: 048
  2. MIRTAZAPINE [Concomitant]
     Active Substance: MIRTAZAPINE
     Indication: Depression
     Dosage: 15 MILLIGRAM, ONCE A DAY (MORNING)
     Route: 048
     Dates: start: 20250612, end: 20250618
  3. DULOXETINE HYDROCHLORIDE [Concomitant]
     Active Substance: DULOXETINE HYDROCHLORIDE
     Indication: Depression
     Dosage: 30 MILLIGRAM, ONCE A DAY
     Route: 048
     Dates: start: 20250624
  4. RISPERIDONE [Concomitant]
     Active Substance: RISPERIDONE
     Indication: Cognitive disorder
     Dosage: 0.5 MILLIGRAM, TWO TIMES A DAY (MORNING AND EVENING)
     Route: 048
     Dates: end: 20250623

REACTIONS (4)
  - Mutism [Not Recovered/Not Resolved]
  - Psychomotor skills impaired [Not Recovered/Not Resolved]
  - Somnolence [Not Recovered/Not Resolved]
  - Stupor [Not Recovered/Not Resolved]

NARRATIVE: CASE EVENT DATE: 20250618
